FAERS Safety Report 4595785-8 (Version None)
Quarter: 2005Q1

REPORT INFORMATION
  Report Type: 
  Country: None (occurrence: None)
  Receive Date: 20050224
  Receipt Date: 20050216
  Transmission Date: 20050727
  Serious: Yes (Life-Threatening)
  Sender: FDA-Public Use
  Company Number: 2005AP01206

PATIENT
  Age: 79 Year
  Sex: Male

DRUGS (5)
  1. DIPRIVAN [Suspect]
     Indication: SEDATION
     Dates: end: 20050215
  2. CIPROXAN [Suspect]
  3. FIRSTCIN [Suspect]
  4. DERANTEL [Suspect]
  5. IMMUNE GLOBULIN INTRAVENOUS (HUMAN) [Suspect]

REACTIONS (3)
  - HEPATIC FUNCTION ABNORMAL [None]
  - HYPERTHERMIA MALIGNANT [None]
  - SEPSIS [None]
